FAERS Safety Report 5622959-7 (Version None)
Quarter: 2008Q1

REPORT INFORMATION
  Report Type: 
  Country: None (occurrence: None)
  Receive Date: 20080206
  Receipt Date: 20080129
  Transmission Date: 20080703
  Serious: Yes (Hospitalization)
  Sender: FDA-Public Use
  Company Number: 2007SP023826

PATIENT
  Sex: Female
  Weight: 84 kg

DRUGS (9)
  1. PEG-INTRON [Suspect]
     Indication: HEPATITIS C
     Dosage: 1.5 MCG/KG; QW; SC, 0.75 MCG/KG; QW; SC, 1.5 MCG/KG; QW; SC
     Route: 058
     Dates: start: 20071017, end: 20071121
  2. PEG-INTRON [Suspect]
     Indication: HEPATITIS C
     Dosage: 1.5 MCG/KG; QW; SC, 0.75 MCG/KG; QW; SC, 1.5 MCG/KG; QW; SC
     Route: 058
     Dates: start: 20071128, end: 20080102
  3. PEG-INTRON [Suspect]
     Indication: HEPATITIS C
     Dosage: 1.5 MCG/KG; QW; SC, 0.75 MCG/KG; QW; SC, 1.5 MCG/KG; QW; SC
     Route: 058
     Dates: start: 20080109
  4. RIBAVIRIN [Suspect]
     Indication: HEPATITIS C
     Dosage: 1200 MG; QD; PO, 400 MG; QD; PO, 600 MG; QD; PO
     Route: 048
     Dates: start: 20071101, end: 20071210
  5. RIBAVIRIN [Suspect]
     Indication: HEPATITIS C
     Dosage: 1200 MG; QD; PO, 400 MG; QD; PO, 600 MG; QD; PO
     Route: 048
     Dates: start: 20071210, end: 20080108
  6. RIBAVIRIN [Suspect]
     Indication: HEPATITIS C
     Dosage: 1200 MG; QD; PO, 400 MG; QD; PO, 600 MG; QD; PO
     Route: 048
     Dates: start: 20080109
  7. BLINDED SCH 900518 [Suspect]
     Indication: HEPATITIS C
     Dosage: 800 MG; TID; PO, 800 MG; TID; PO
     Route: 048
     Dates: start: 20070912, end: 20070918
  8. BLINDED SCH 900518 [Suspect]
     Indication: HEPATITIS C
     Dosage: 800 MG; TID; PO, 800 MG; TID; PO
     Route: 048
     Dates: start: 20071017, end: 20071030
  9. FLUCLOXACILLIN [Concomitant]

REACTIONS (6)
  - ASTHENIA [None]
  - C-REACTIVE PROTEIN INCREASED [None]
  - MALAISE [None]
  - PYREXIA [None]
  - STAPHYLOCOCCAL ABSCESS [None]
  - WEIGHT DECREASED [None]
